FAERS Safety Report 7812783-9 (Version None)
Quarter: 2011Q4

REPORT INFORMATION
  Report Type: 
  Country: None (occurrence: None)
  Receive Date: 20111013
  Receipt Date: 20111007
  Transmission Date: 20120403
  Serious: Yes (Other)
  Sender: FDA-Public Use
  Company Number: DE-AMGEN-DEUCT2011051863

PATIENT
  Sex: Female

DRUGS (4)
  1. PANITUMUMAB [Suspect]
     Indication: OESOPHAGEAL ADENOCARCINOMA
  2. EPIRUBICIN [Concomitant]
  3. CAPECITABINE [Concomitant]
  4. CISPLATIN [Concomitant]

REACTIONS (1)
  - THROMBOSIS [None]
